FAERS Safety Report 17944002 (Version 14)
Quarter: 2021Q3

REPORT INFORMATION
  Report Type: Spontaneous
  Country: US (occurrence: US)
  Receive Date: 20200625
  Receipt Date: 20210702
  Transmission Date: 20211014
  Serious: Yes (Other)
  Sender: FDA-Public Use
  Company Number: US-PFIZER INC-2020243628

PATIENT
  Age: 64 Year
  Sex: Female
  Weight: 58.06 kg

DRUGS (2)
  1. PREMARIN [Suspect]
     Active Substance: ESTROGENS, CONJUGATED
     Indication: HOT FLUSH
     Dosage: 0.3 MG, DAILY
     Route: 048
  2. PREMARIN [Suspect]
     Active Substance: ESTROGENS, CONJUGATED
     Indication: VULVOVAGINAL DRYNESS
     Dosage: 0.625 MG (APPLY THREE TIMES A WEEK (MON, WED, FRI)
     Route: 067

REACTIONS (11)
  - Pain [Unknown]
  - Frustration tolerance decreased [Unknown]
  - Body height decreased [Unknown]
  - Osteoporosis [Unknown]
  - Urinary tract infection [Unknown]
  - Vulvovaginal pain [Unknown]
  - Cataract [Unknown]
  - Osteoarthritis [Unknown]
  - Spinal osteoarthritis [Unknown]
  - Anger [Unknown]
  - Off label use [Unknown]
